FAERS Safety Report 20550731 (Version 2)
Quarter: 2022Q1

REPORT INFORMATION
  Report Type: Spontaneous
  Country: IT (occurrence: IT)
  Receive Date: 20220304
  Receipt Date: 20220325
  Transmission Date: 20220423
  Serious: Yes (Other)
  Sender: FDA-Public Use
  Company Number: None

PATIENT
  Age: 69 Year
  Sex: Female
  Weight: 61 kg

DRUGS (6)
  1. CARBOPLATIN [Suspect]
     Active Substance: CARBOPLATIN
     Indication: Lung adenocarcinoma stage IV
     Dosage: 477.2MG, FREQUENCY -1 CYCLICAL
     Route: 042
     Dates: start: 20220124, end: 20220124
  2. ALIMTA [Suspect]
     Active Substance: PEMETREXED DISODIUM
     Indication: Lung adenocarcinoma stage IV
     Dosage: 624MG, FREQUENCY -1 CYCLICAL
     Route: 042
     Dates: start: 20220124, end: 20220124
  3. PAROXETINE [Concomitant]
     Active Substance: PAROXETINE
     Dosage: 20MG, FREQUENCY TIME - 1 DAY
  4. PREGABALIN [Concomitant]
     Active Substance: PREGABALIN
     Dosage: 75MG, FREQUENCY TIME - 1 DAY
  5. OLMESARTAN MEDOXOMIL [Concomitant]
     Active Substance: OLMESARTAN MEDOXOMIL
     Dosage: 20MG, FREQUENCY TIME - 1 DAY
  6. METOPROLOL [Concomitant]
     Active Substance: METOPROLOL
     Dosage: 100MG, FREQUENCY TIME - 1 DAY

REACTIONS (1)
  - Lymphopenia [Recovering/Resolving]

NARRATIVE: CASE EVENT DATE: 20220202
